FAERS Safety Report 12402162 (Version 4)
Quarter: 2016Q2

REPORT INFORMATION
  Report Type: Spontaneous
  Country: JP (occurrence: JP)
  Receive Date: 20160525
  Receipt Date: 20160629
  Transmission Date: 20160815
  Serious: Yes (Other)
  Sender: FDA-Public Use
  Company Number: JP-ABBVIE-16P-087-1633994-00

PATIENT
  Age: 54 Year
  Sex: Male
  Weight: 67 kg

DRUGS (5)
  1. EMTRICITABINE W/TENOFOVIR DISOPROXIL FUMARATE [Concomitant]
     Active Substance: EMTRICITABINE\TENOFOVIR DISOPROXIL
     Indication: HIV INFECTION
     Route: 048
     Dates: start: 20080528
  2. DARUNAVIR ETHANOLATE. [Concomitant]
     Active Substance: DARUNAVIR ETHANOLATE
     Indication: HIV INFECTION
     Route: 048
     Dates: start: 20120411
  3. LIDOCAINE. [Interacting]
     Active Substance: LIDOCAINE
     Indication: GENERAL ANAESTHESIA
     Route: 042
     Dates: start: 20160517
  4. LIDOCAINE. [Interacting]
     Active Substance: LIDOCAINE
     Indication: VENTRICULAR EXTRASYSTOLES
  5. NORVIR [Suspect]
     Active Substance: RITONAVIR
     Indication: HIV INFECTION
     Route: 048
     Dates: start: 20120411

REACTIONS (3)
  - Bradycardia [Recovered/Resolved]
  - Tongue neoplasm malignant stage unspecified [Unknown]
  - Drug interaction [Unknown]

NARRATIVE: CASE EVENT DATE: 20160517
